FAERS Safety Report 4285746-0 (Version None)
Quarter: 2004Q1

REPORT INFORMATION
  Report Type: 
  Country: None (occurrence: None)
  Receive Date: 20040202
  Receipt Date: 20040121
  Transmission Date: 20041129
  Serious: Yes (Death)
  Sender: FDA-Public Use
  Company Number: 200410489US

PATIENT
  Age: 67 Year
  Sex: Female

DRUGS (3)
  1. LANTUS [Suspect]
     Indication: DIABETES MELLITUS
     Dosage: INJ
  2. INSULIN HUMAN INJECTION, ISOPHANE, INSULIN HUMAN ZINC SUSPENSION (HUMU [Concomitant]
  3. CHEMOTHERAPY NOS [Concomitant]

REACTIONS (1)
  - GASTRIC CANCER [None]
